FAERS Safety Report 11189116 (Version 1)
Quarter: 2015Q2

REPORT INFORMATION
  Report Type: Spontaneous
  Country: US (occurrence: None)
  Receive Date: 20150612
  Receipt Date: 20150612
  Transmission Date: 20150821
  Serious: Yes (Other)
  Sender: FDA-Public Use
  Company Number: None

PATIENT
  Age: 50 Year
  Sex: Female

DRUGS (28)
  1. CLINDAMYCIN [Concomitant]
     Active Substance: CLINDAMYCIN\CLINDAMYCIN PHOSPHATE
  2. CYMBALTA [Concomitant]
     Active Substance: DULOXETINE HYDROCHLORIDE
  3. ESZOPICLONE. [Concomitant]
     Active Substance: ESZOPICLONE
  4. HYDROCO/APAP [Concomitant]
     Active Substance: ACETAMINOPHEN\HYDROCODONE
  5. HYDROXYZ HCL [Concomitant]
     Active Substance: HYDROXYZINE HYDROCHLORIDE
  6. LORAZEPAM. [Concomitant]
     Active Substance: LORAZEPAM
  7. TRAZODONE [Concomitant]
     Active Substance: TRAZODONE HYDROCHLORIDE
  8. LITHIUM CARB [Concomitant]
     Active Substance: LITHIUM CARBONATE
  9. DIAZEPAM. [Concomitant]
     Active Substance: DIAZEPAM
  10. GABAPENTIN. [Concomitant]
     Active Substance: GABAPENTIN
  11. MECLIZINE [Concomitant]
     Active Substance: MECLIZINE\MECLIZINE HYDROCHLORIDE
  12. OXYCODONE AND ACETAMINOPHEN [Concomitant]
     Active Substance: ACETAMINOPHEN\OXYCODONE\OXYCODONE HYDROCHLORIDE
  13. REBIF [Concomitant]
     Active Substance: INTERFERON BETA-1A
  14. BUDEPRION XL [Concomitant]
     Active Substance: BUPROPION HYDROCHLORIDE
  15. SERTRALINE [Concomitant]
     Active Substance: SERTRALINE HYDROCHLORIDE
  16. AMOXICILLIN. [Concomitant]
     Active Substance: AMOXICILLIN
  17. REBIF [Suspect]
     Active Substance: INTERFERON BETA-1A
     Indication: MULTIPLE SCLEROSIS
     Route: 058
     Dates: start: 201105
  18. AMITRIPTYLIN [Concomitant]
     Active Substance: AMITRIPTYLINE
  19. ORTHO FLEX [Concomitant]
  20. PREDNISONE. [Concomitant]
     Active Substance: PREDNISONE
  21. TRIAMICINOLON [Concomitant]
  22. ZOLPIDEM [Concomitant]
     Active Substance: ZOLPIDEM\ZOLPIDEM TARTRATE
  23. FLUOCINONIDE. [Concomitant]
     Active Substance: FLUOCINONIDE
  24. LATUDA [Concomitant]
     Active Substance: LURASIDONE HYDROCHLORIDE
  25. AMLODIPINE [Concomitant]
     Active Substance: AMLODIPINE BESYLATE
  26. IBUPROFEN. [Concomitant]
     Active Substance: IBUPROFEN
  27. NITROFURANTIN [Concomitant]
     Active Substance: NITROFURANTOIN
  28. SEROQUEL [Concomitant]
     Active Substance: QUETIAPINE FUMARATE

REACTIONS (1)
  - Rash [None]

NARRATIVE: CASE EVENT DATE: 201402
